FAERS Safety Report 8461297-4 (Version None)
Quarter: 2012Q2

REPORT INFORMATION
  Report Type: 
  Country: None (occurrence: None)
  Receive Date: 20120619
  Receipt Date: 20120619
  Transmission Date: 20120825
  Serious: No
  Sender: FDA-Public Use
  Company Number: None

PATIENT
  Age: 66 Year
  Sex: Male
  Weight: 88.905 kg

DRUGS (8)
  1. ASPIRIN [Concomitant]
  2. METOPROLOL TARTRATE [Concomitant]
  3. LOTREL [Suspect]
     Indication: HYPERTENSION
     Dosage: 5/20 MG DAILY PO
     Route: 048
     Dates: start: 20090201, end: 20100801
  4. MULTI-VITAMIN [Concomitant]
  5. HYDROCHLOROTHIAZIDE [Concomitant]
  6. CETIRIZINE [Concomitant]
  7. CRESTOR [Concomitant]
  8. NEXIUM [Concomitant]

REACTIONS (2)
  - LIP SWELLING [None]
  - JAW DISORDER [None]
